FAERS Safety Report 9039354 (Version 1)
Quarter: 2013Q1

REPORT INFORMATION
  Report Type: Report from Study
  Country: US (occurrence: US)
  Receive Date: 20130129
  Receipt Date: 20130129
  Transmission Date: 20140127
  Serious: No
  Sender: FDA-Public Use
  Company Number: US-ABBOTT-12P-163-0931610-00

PATIENT
  Age: 24 Year
  Sex: Male

DRUGS (12)
  1. HUMIRA 40 MG/0.8 ML PEN [Suspect]
     Indication: CROHN^S DISEASE
     Dates: start: 2010, end: 201202
  2. HUMIRA 40 MG/0.8 ML PEN [Suspect]
     Dates: start: 201007, end: 201202
  3. HUMIRA 40 MG/0.8 ML PEN [Suspect]
     Dates: start: 201202
  4. AMBIEN [Concomitant]
     Indication: INSOMNIA
  5. HYDROCODONE [Concomitant]
     Indication: PAIN
     Dosage: 10/325, ONE EVERY 6 HOURS AS NEEDED
  6. LOPERAMIDE [Concomitant]
     Indication: CROHN^S DISEASE
  7. PREVACID [Concomitant]
     Indication: GASTROOESOPHAGEAL REFLUX DISEASE
  8. NORTRIPTYLINE [Concomitant]
     Indication: DEPRESSION
  9. ZOFRAN [Concomitant]
     Indication: NAUSEA
  10. MULTIVITAMIN [Concomitant]
     Indication: PRODUCT USED FOR UNKNOWN INDICATION
  11. CLOTRIMAZOLE [Concomitant]
     Indication: CHEILITIS
  12. HYOSCYAMINE [Concomitant]
     Indication: ABDOMINAL PAIN
     Route: 060

REACTIONS (2)
  - Oropharyngeal pain [Recovered/Resolved]
  - Ear infection [Recovered/Resolved]
